FAERS Safety Report 5211422-3 (Version None)
Quarter: 2006Q4

REPORT INFORMATION
  Report Type: 
  Country: None (occurrence: None)
  Receive Date: 20061115
  Receipt Date: 20060717
  Transmission Date: 20070319
  Serious: No
  Sender: FDA-Public Use
  Company Number: 200614630BWH

PATIENT
  Age: 72 Year
  Sex: Male

DRUGS (8)
  1. NEXAVAR [Suspect]
     Indication: RENAL CELL CARCINOMA STAGE UNSPECIFIED
     Dosage: 800 MG, TOTAL DAILY, ORAL
     Route: 048
     Dates: start: 20051212
  2. COLCHICINE [Concomitant]
  3. SENOKOT [SENNA ALEXANDRINA] [Concomitant]
  4. FENTANYL TRANSDERMAL SYSTEM [Concomitant]
  5. HUMALOG [Concomitant]
  6. LANTUS [Concomitant]
  7. DEPO-TESTOSTERONE [Concomitant]
  8. FERROUS SULFATE TAB [Concomitant]

REACTIONS (2)
  - DEPERSONALISATION [None]
  - FEELING ABNORMAL [None]
